FAERS Safety Report 5414877-4 (Version None)
Quarter: 2007Q3

REPORT INFORMATION
  Report Type: 
  Country: None (occurrence: None)
  Receive Date: 20070815
  Receipt Date: 20070201
  Transmission Date: 20080115
  Serious: No
  Sender: FDA-Public Use
  Company Number: US-KINGPHARMUSA00001-K200700126

PATIENT

DRUGS (1)
  1. SEPTRA [Suspect]
     Indication: URINARY TRACT INFECTION
     Dosage: UNK, BID
     Route: 048
     Dates: start: 20070126

REACTIONS (5)
  - ARTHRALGIA [None]
  - BONE MARROW FAILURE [None]
  - HAEMOGLOBIN DECREASED [None]
  - MYALGIA [None]
  - PLATELET COUNT DECREASED [None]
